FAERS Safety Report 7468635-X (Version None)
Quarter: 2011Q2

REPORT INFORMATION
  Report Type: 
  Country: None (occurrence: None)
  Receive Date: 20110510
  Receipt Date: 20110429
  Transmission Date: 20111010
  Serious: Yes (Hospitalization)
  Sender: FDA-Public Use
  Company Number: US-BIOGENIDEC-2010BI021314

PATIENT
  Age: 45 Year
  Sex: Male

DRUGS (1)
  1. TYSABRI [Suspect]
     Indication: MULTIPLE SCLEROSIS
     Route: 042
     Dates: start: 20080814, end: 20100907

REACTIONS (14)
  - DRUG WITHDRAWAL SYNDROME [None]
  - SPINAL FUSION SURGERY [None]
  - LIBIDO DECREASED [None]
  - MEMORY IMPAIRMENT [None]
  - MUSCLE SPASMS [None]
  - DIABETES MELLITUS [None]
  - DRUG DEPENDENCE [None]
  - LOSS OF CONSCIOUSNESS [None]
  - MUSCLE RUPTURE [None]
  - WEIGHT DECREASED [None]
  - DEPRESSION [None]
  - PAIN IN EXTREMITY [None]
  - WEIGHT INCREASED [None]
  - COMA [None]
